FAERS Safety Report 11338045 (Version 1)
Quarter: 2015Q3

REPORT INFORMATION
  Report Type: Spontaneous
  Country: US (occurrence: US)
  Receive Date: 20150803
  Receipt Date: 20150803
  Transmission Date: 20151125
  Serious: No
  Sender: FDA-Public Use
  Company Number: US-ELI_LILLY_AND_COMPANY-US201005007440

PATIENT
  Age: 89 Year
  Sex: Male

DRUGS (1)
  1. ZYPREXA [Suspect]
     Active Substance: OLANZAPINE
     Indication: GRIEF REACTION
     Dosage: 37 MG, DAILY (1/D)
     Dates: start: 20100511

REACTIONS (5)
  - Restlessness [Unknown]
  - Agitation [Unknown]
  - Prescribed overdose [Unknown]
  - Irritability [Unknown]
  - Off label use [Unknown]

NARRATIVE: CASE EVENT DATE: 20100511
